FAERS Safety Report 10047484 (Version 1)
Quarter: 2014Q1

REPORT INFORMATION
  Report Type: Spontaneous
  Country: US (occurrence: None)
  Receive Date: 20140328
  Receipt Date: 20140328
  Transmission Date: 20141002
  Serious: Yes (Other)
  Sender: FDA-Public Use
  Company Number: None

PATIENT
  Age: 67 Year
  Sex: Male

DRUGS (2)
  1. TEMOZOLOMIDE [Suspect]
     Indication: BRAIN NEOPLASM MALIGNANT
     Dosage: 280 MG QD X 5 DAYS Q 28 ORAL
     Dates: start: 20131018, end: 20140225
  2. TEMOZOLOMIDE [Suspect]
     Indication: BRAIN NEOPLASM MALIGNANT
     Dosage: 15 MG QD X 5 DAYS Q 28 ORAL
     Dates: start: 20131018, end: 20140225

REACTIONS (2)
  - Drug ineffective [None]
  - Neoplasm [None]
